FAERS Safety Report 6426102-6 (Version None)
Quarter: 2009Q4

REPORT INFORMATION
  Report Type: 
  Country: None (occurrence: None)
  Receive Date: 20091103
  Receipt Date: 20091103
  Transmission Date: 20100525
  Serious: Yes (Other)
  Sender: FDA-Public Use
  Company Number: None

PATIENT
  Age: 10 Year
  Sex: Male
  Weight: 50.8029 kg

DRUGS (2)
  1. ALBUTEROL [Suspect]
     Dosage: 2-4 INHALATION Q 4-6 HR PRN PO
     Route: 048
  2. MAXAIR [Suspect]
     Dosage: 2-4 PUFFS Q 4-6 HRS PRN PO
     Route: 048

REACTIONS (2)
  - DRUG INEFFECTIVE [None]
  - PALPITATIONS [None]
